FAERS Safety Report 7039172-1 (Version None)
Quarter: 2010Q4

REPORT INFORMATION
  Report Type: 
  Country: None (occurrence: None)
  Receive Date: 20101012
  Receipt Date: 20101008
  Transmission Date: 20110411
  Serious: Yes (Death)
  Sender: FDA-Public Use
  Company Number: PHHY2010FR67355

PATIENT
  Age: 30 Year
  Sex: Female

DRUGS (4)
  1. LEPONEX [Suspect]
     Indication: SCHIZOPHRENIA
  2. TERCIAN [Suspect]
     Indication: SCHIZOPHRENIA
  3. TRIMEPRAZINE TAB [Concomitant]
  4. LOXAPAC [Concomitant]

REACTIONS (1)
  - DEATH [None]
